FAERS Safety Report 14272490 (Version 1)
Quarter: 2017Q4

REPORT INFORMATION
  Report Type: Spontaneous
  Country: DE (occurrence: DE)
  Receive Date: 20171211
  Receipt Date: 20171211
  Transmission Date: 20180321
  Serious: Yes (Death)
  Sender: FDA-Public Use
  Company Number: DE-OTSUKA-BMS-2015-088747

PATIENT
  Age: 39 Year
  Sex: Male

DRUGS (5)
  1. BISOHEXAL [Concomitant]
     Active Substance: BISOPROLOL FUMARATE
     Indication: HYPERTENSION
     Dosage: 5 MG, QD
     Route: 065
  2. RAMIPRIL. [Concomitant]
     Active Substance: RAMIPRIL
     Indication: HYPERTENSION
     Dosage: 2.5 MG, QD
     Route: 065
  3. SOLIAN [Concomitant]
     Active Substance: AMISULPRIDE
     Indication: PRODUCT USED FOR UNKNOWN INDICATION
     Route: 065
  4. AMISULPRID [Concomitant]
     Active Substance: AMISULPRIDE
     Indication: PRODUCT USED FOR UNKNOWN INDICATION
     Dosage: 200 MG, QD
     Route: 065
  5. ARIPIPRAZOLE. [Suspect]
     Active Substance: ARIPIPRAZOLE
     Indication: PRODUCT USED FOR UNKNOWN INDICATION
     Dosage: 1 DF, UNK
     Route: 065
     Dates: start: 20150502

REACTIONS (12)
  - Completed suicide [Fatal]
  - Lip disorder [Unknown]
  - Hyperhidrosis [Unknown]
  - Inappropriate schedule of drug administration [Unknown]
  - Decreased appetite [Unknown]
  - Retching [Unknown]
  - Sleep disorder [Unknown]
  - Breast pain [Unknown]
  - Asthenia [Unknown]
  - Apathy [Unknown]
  - Blood glucose increased [Unknown]
  - Depression [Unknown]

NARRATIVE: CASE EVENT DATE: 20150502
